FAERS Safety Report 10428301 (Version 3)
Quarter: 2015Q2

REPORT INFORMATION
  Report Type: Spontaneous
  Country: US (occurrence: US)
  Receive Date: 20140903
  Receipt Date: 20150415
  Transmission Date: 20150821
  Serious: Yes (Hospitalization, Other)
  Sender: FDA-Public Use
  Company Number: US-009507513-1409USA000937

PATIENT
  Sex: Male
  Weight: 87.53 kg

DRUGS (1)
  1. JANUMET [Suspect]
     Active Substance: METFORMIN HYDROCHLORIDE\SITAGLIPTIN PHOSPHATE
     Indication: TYPE 2 DIABETES MELLITUS
     Dosage: 1000 / 50MG BID
     Route: 048
     Dates: start: 20091204, end: 201009

REACTIONS (19)
  - Prostatomegaly [Unknown]
  - Arteriosclerosis coronary artery [Unknown]
  - Type 1 diabetes mellitus [Unknown]
  - Cholecystitis [Unknown]
  - Pancreaticoduodenectomy [Unknown]
  - Vertebral lesion [Unknown]
  - Cholecystectomy [Unknown]
  - Injection site reaction [Recovered/Resolved]
  - Pulmonary mass [Unknown]
  - Aortic arteriosclerosis [Unknown]
  - Depression [Unknown]
  - Spinal osteoarthritis [Unknown]
  - Visual acuity reduced [Unknown]
  - Bile duct stent insertion [Unknown]
  - Hiatus hernia [Unknown]
  - Glaucoma [Unknown]
  - Suture related complication [Unknown]
  - Bone lesion [Unknown]
  - Adenocarcinoma pancreas [Unknown]

NARRATIVE: CASE EVENT DATE: 201009
